FAERS Safety Report 9707092 (Version 1)
Quarter: 2013Q4

REPORT INFORMATION
  Report Type: Spontaneous
  Country: US (occurrence: None)
  Receive Date: 20131122
  Receipt Date: 20131122
  Transmission Date: 20140711
  Serious: No
  Sender: FDA-Public Use
  Company Number: None

PATIENT
  Age: 36 Year
  Sex: Female
  Weight: 52.62 kg

DRUGS (8)
  1. MIRVASO [Suspect]
     Indication: ROSACEA
     Dosage: 30 EACH MORNING TOPICALLY ON MY FACE
     Dates: start: 20131005, end: 20131120
  2. ROWASA [Concomitant]
  3. ARMOUR THYROID [Concomitant]
  4. MIRVASO [Concomitant]
  5. VSL #3 [Concomitant]
  6. FISH OIL [Concomitant]
  7. VITAMIN D [Concomitant]
  8. VITAMIN B COMPLEX [Concomitant]

REACTIONS (2)
  - Flushing [None]
  - Erythema [None]
